FAERS Safety Report 22313234 (Version 1)
Quarter: 2023Q2

REPORT INFORMATION
  Report Type: Spontaneous
  Country: NL (occurrence: NL)
  Receive Date: 20230512
  Receipt Date: 20230512
  Transmission Date: 20230721
  Serious: Yes (Other)
  Sender: FDA-Public Use
  Company Number: NL-002147023-NVSC2023NL105952

PATIENT
  Sex: Female

DRUGS (1)
  1. PIQRAY [Suspect]
     Active Substance: ALPELISIB
     Indication: Product used for unknown indication
     Dosage: UNK (STOPPED LAST TUESDAY)
     Route: 065
     Dates: end: 20230502

REACTIONS (6)
  - Diabetes mellitus [Recovered/Resolved]
  - Pseudomonas infection [Unknown]
  - Wound infection staphylococcal [Unknown]
  - Ulcer [Unknown]
  - Eczema [Unknown]
  - Skin discharge [Unknown]
